FAERS Safety Report 15745672 (Version 1)
Quarter: 2018Q4

REPORT INFORMATION
  Report Type: Spontaneous
  Country: US (occurrence: US)
  Receive Date: 20181220
  Receipt Date: 20181220
  Transmission Date: 20190205
  Serious: Yes (Other)
  Sender: FDA-Public Use
  Company Number: US-GUERBET-US-20180300

PATIENT
  Age: 42 Year
  Sex: Male
  Weight: 104.3 kg

DRUGS (1)
  1. DOTAREM [Suspect]
     Active Substance: GADOTERATE MEGLUMINE
     Indication: NUCLEAR MAGNETIC RESONANCE IMAGING
     Route: 042
     Dates: start: 20181207, end: 20181207

REACTIONS (7)
  - Product use in unapproved indication [Unknown]
  - Hypoaesthesia oral [Unknown]
  - Loss of consciousness [Unknown]
  - Malaise [Unknown]
  - Flushing [Unknown]
  - Respiration abnormal [Unknown]
  - Hyperhidrosis [Unknown]

NARRATIVE: CASE EVENT DATE: 20181207
